FAERS Safety Report 6739439-8 (Version None)
Quarter: 2010Q2

REPORT INFORMATION
  Report Type: 
  Country: None (occurrence: None)
  Receive Date: 20100525
  Receipt Date: 20100517
  Transmission Date: 20101027
  Serious: Yes (Other)
  Sender: FDA-Public Use
  Company Number: GXKR2010GB05536

PATIENT
  Age: 66 Year
  Sex: Female
  Weight: 69.85 kg

DRUGS (5)
  1. SIMVASTATIN [Suspect]
     Indication: BLOOD CHOLESTEROL INCREASED
     Dosage: 40 MG
     Route: 048
     Dates: start: 20100416, end: 20100428
  2. ADALAT [Concomitant]
     Dosage: 30 MG
     Route: 065
  3. ACETYLSALICYLIC ACID [Concomitant]
     Dosage: 75 MG
     Route: 065
  4. BENDROFLUMETHIAZIDE [Concomitant]
     Dosage: 2.5 MG
     Route: 065
  5. OPTIVE LUBRICANT EYE DROPS [Concomitant]
     Dosage: 0.5%
     Route: 065

REACTIONS (3)
  - ABDOMINAL PAIN UPPER [None]
  - LIP ULCERATION [None]
  - MOUTH ULCERATION [None]
